FAERS Safety Report 12678419 (Version 2)
Quarter: 2016Q4

REPORT INFORMATION
  Report Type: Spontaneous
  Country: BR (occurrence: BR)
  Receive Date: 20160823
  Receipt Date: 20161102
  Transmission Date: 20170207
  Serious: Yes (Other)
  Sender: FDA-Public Use
  Company Number: BR-ELI_LILLY_AND_COMPANY-BR201608008263

PATIENT
  Age: 34 Year
  Sex: Female

DRUGS (3)
  1. CYMBALTA [Suspect]
     Active Substance: DULOXETINE HYDROCHLORIDE
     Indication: ANXIETY
     Dosage: 30 MG, QD
     Dates: start: 20160519, end: 20160803
  2. REMERON [Concomitant]
     Active Substance: MIRTAZAPINE
     Indication: ANXIETY
     Dosage: 15 MG, QD
     Route: 065
  3. CYMBALTA [Suspect]
     Active Substance: DULOXETINE HYDROCHLORIDE
     Indication: DEPRESSION
     Dosage: 60 MG, QD
     Route: 065
     Dates: start: 20151219

REACTIONS (12)
  - Suicidal ideation [Recovered/Resolved]
  - Withdrawal syndrome [Unknown]
  - Pelvic pain [Unknown]
  - Nausea [Unknown]
  - Crying [Unknown]
  - Pain [Unknown]
  - Vertigo [Unknown]
  - Decreased appetite [Unknown]
  - Hypoaesthesia [Unknown]
  - Affect lability [Unknown]
  - Speech disorder [Unknown]
  - Nervousness [Unknown]
